FAERS Safety Report 5194021-1 (Version None)
Quarter: 2006Q4

REPORT INFORMATION
  Report Type: 
  Country: None (occurrence: None)
  Receive Date: 20061228
  Receipt Date: 20061219
  Transmission Date: 20070319
  Serious: Yes (Other)
  Sender: FDA-Public Use
  Company Number: US-ROCHE-476463

PATIENT
  Age: 44 Year
  Sex: Female

DRUGS (5)
  1. PEGASYS [Suspect]
     Indication: HEPATITIS C
     Route: 065
     Dates: start: 20061127, end: 20061129
  2. COPEGUS [Suspect]
     Indication: HEPATITIS C
     Route: 065
     Dates: start: 20061127, end: 20061129
  3. PAXIL [Concomitant]
  4. TOPAMAX [Concomitant]
  5. VALIUM [Concomitant]

REACTIONS (1)
  - BREAST MASS [None]
